FAERS Safety Report 11497880 (Version 2)
Quarter: 2015Q4

REPORT INFORMATION
  Report Type: Report from Study
  Country: BR (occurrence: BR)
  Receive Date: 20150911
  Receipt Date: 20151012
  Transmission Date: 20160304
  Serious: Yes (Hospitalization, Other)
  Sender: FDA-Public Use
  Company Number: PHHY2015BR029272

PATIENT
  Age: 80 Year
  Sex: Female
  Weight: 47 kg

DRUGS (1)
  1. ACLASTA [Suspect]
     Active Substance: ZOLEDRONIC ACID
     Indication: OSTEOPOROSIS
     Dosage: 5 MG, Q12MO
     Route: 042
     Dates: start: 20140730, end: 20140730

REACTIONS (12)
  - Deafness [Unknown]
  - Spinal pain [Recovered/Resolved]
  - Pleural effusion [Recovering/Resolving]
  - Pancreatitis [Recovering/Resolving]
  - Hearing impaired [Not Recovered/Not Resolved]
  - Abdominal pain [Unknown]
  - Pain in extremity [Not Recovered/Not Resolved]
  - Hepatitis [Recovering/Resolving]
  - Hypoaesthesia [Not Recovered/Not Resolved]
  - Cough [Recovering/Resolving]
  - Ascites [Unknown]
  - Dysphonia [Not Recovered/Not Resolved]

NARRATIVE: CASE EVENT DATE: 201502
